FAERS Safety Report 23222397 (Version 1)
Quarter: 2023Q4

REPORT INFORMATION
  Report Type: Report from Study
  Country: GB (occurrence: GB)
  Receive Date: 20231123
  Receipt Date: 20231123
  Transmission Date: 20240110
  Serious: Yes (Other)
  Sender: FDA-Public Use
  Company Number: GB-UCBSA-2023055502

PATIENT
  Age: 43 Year
  Sex: Male
  Weight: 130 kg

DRUGS (4)
  1. BIMEKIZUMAB [Suspect]
     Active Substance: BIMEKIZUMAB
     Indication: Psoriasis
     Dosage: 320 MILLIGRAM, EV 8 WEEKS, 6 DOSES
     Route: 058
     Dates: start: 20230329
  2. METHOTREXATE SODIUM [Concomitant]
     Active Substance: METHOTREXATE SODIUM
     Indication: Arthritis
     Dosage: 15 MILLIGRAM, WEEKLY (QW)
     Route: 058
     Dates: start: 2023
  3. FOLIC ACID [Concomitant]
     Active Substance: FOLIC ACID
     Indication: Blood iron decreased
     Dosage: 5 MILLIGRAM, DAILY EXCEPT DAY OF METHOTREXATE
     Route: 048
     Dates: start: 20210528
  4. ADALIMUMAB [Concomitant]
     Active Substance: ADALIMUMAB\ISOPROPYL ALCOHOL
     Indication: Product used for unknown indication
     Dosage: UNK
     Dates: start: 20190125, end: 20230330

REACTIONS (3)
  - Epididymitis [Recovered/Resolved]
  - Oral candidiasis [Not Recovered/Not Resolved]
  - Testicular swelling [Unknown]

NARRATIVE: CASE EVENT DATE: 20230717
